FAERS Safety Report 10518536 (Version 2)
Quarter: 2014Q4

REPORT INFORMATION
  Report Type: Report from Study
  Country: GB (occurrence: GB)
  Receive Date: 20141015
  Receipt Date: 20141015
  Transmission Date: 20150528
  Serious: No
  Sender: FDA-Public Use
  Company Number: GB-LEO PHARMA-219050

PATIENT
  Age: 70 Year
  Sex: Male
  Weight: 81 kg

DRUGS (8)
  1. GLICLAZIDE [Concomitant]
     Active Substance: GLICLAZIDE
     Indication: DIABETES MELLITUS
     Route: 048
  2. SAXAGLIPTIN [Concomitant]
     Active Substance: SAXAGLIPTIN
     Indication: DIABETES MELLITUS
     Route: 048
  3. AMLODIPINE [Concomitant]
     Active Substance: AMLODIPINE BESYLATE
     Indication: HYPERTENSION
     Route: 048
  4. RAMIPRIL. [Concomitant]
     Active Substance: RAMIPRIL
     Indication: HYPERTENSION
     Route: 048
  5. BENDROFLUMETHAZIDE [Concomitant]
     Indication: HYPERTENSION
     Route: 048
  6. PICATO [Suspect]
     Active Substance: INGENOL MEBUTATE
     Indication: ACTINIC KERATOSIS
     Route: 061
     Dates: start: 20121002, end: 20121004
  7. DOXAZOSIN [Concomitant]
     Active Substance: DOXAZOSIN\DOXAZOSIN MESYLATE
     Indication: HYPERTENSION
     Route: 048
  8. METFORMIN [Concomitant]
     Active Substance: METFORMIN HYDROCHLORIDE
     Indication: DIABETES MELLITUS
     Route: 048

REACTIONS (2)
  - Periorbital oedema [Unknown]
  - Corneal abrasion [Recovered/Resolved]

NARRATIVE: CASE EVENT DATE: 20121008
